FAERS Safety Report 15857036 (Version 7)
Quarter: 2020Q2

REPORT INFORMATION
  Report Type: Report from Study
  Country: TR (occurrence: TR)
  Receive Date: 20190123
  Receipt Date: 20200428
  Transmission Date: 20200713
  Serious: Yes (Other)
  Sender: FDA-Public Use
  Company Number: PHHY2018TR050530

PATIENT
  Age: 63 Year
  Sex: Female

DRUGS (9)
  1. LANTUS [Concomitant]
     Active Substance: INSULIN GLARGINE
     Indication: DIABETES MELLITUS
     Dosage: UNK
     Route: 065
  2. VOTRIENT [Suspect]
     Active Substance: PAZOPANIB HYDROCHLORIDE
     Dosage: 600 OT, UNK
     Route: 048
     Dates: start: 20181021, end: 20181119
  3. VOTRIENT [Suspect]
     Active Substance: PAZOPANIB HYDROCHLORIDE
     Dosage: 200 OT, UNK
     Route: 048
     Dates: start: 20181120, end: 20190416
  4. COVERAM [Concomitant]
     Active Substance: AMLODIPINE\PERINDOPRIL
     Indication: HYPERTENSION
     Dosage: 15 MG, UNK
     Route: 048
     Dates: start: 2015
  5. VOTRIENT [Suspect]
     Active Substance: PAZOPANIB HYDROCHLORIDE
     Indication: RENAL CELL CARCINOMA
     Dosage: 800 OT, UNK
     Route: 048
     Dates: start: 20180511, end: 20180612
  6. VOTRIENT [Suspect]
     Active Substance: PAZOPANIB HYDROCHLORIDE
     Dosage: 800 OT, UNK
     Route: 048
     Dates: start: 20180620, end: 20180712
  7. VOTRIENT [Suspect]
     Active Substance: PAZOPANIB HYDROCHLORIDE
     Dosage: 600 OT, UNK
     Route: 048
     Dates: start: 20180723, end: 20180923
  8. VOTRIENT [Suspect]
     Active Substance: PAZOPANIB HYDROCHLORIDE
     Dosage: 200 OT
     Route: 048
     Dates: start: 20190807
  9. DIAFORMIN [Concomitant]
     Active Substance: METFORMIN HYDROCHLORIDE
     Indication: DIABETES MELLITUS
     Dosage: UNK
     Route: 065

REACTIONS (27)
  - Fatigue [Not Recovered/Not Resolved]
  - Weight decreased [Recovered/Resolved]
  - Decreased appetite [Not Recovered/Not Resolved]
  - Hypertriglyceridaemia [Recovered/Resolved]
  - Diarrhoea [Recovered/Resolved]
  - Aspartate aminotransferase increased [Recovered/Resolved]
  - Blood lactate dehydrogenase increased [Recovered/Resolved]
  - Diarrhoea [Recovered/Resolved]
  - Hypothyroidism [Recovered/Resolved]
  - Thrombocytopenia [Recovered/Resolved]
  - Leukopenia [Recovered/Resolved]
  - Aspartate aminotransferase increased [Recovered/Resolved]
  - Vertigo [Not Recovered/Not Resolved]
  - Hyperkalaemia [Recovered/Resolved]
  - Hyperkalaemia [Recovered/Resolved]
  - Dysgeusia [Recovered/Resolved]
  - Vomiting [Not Recovered/Not Resolved]
  - Hypothyroidism [Not Recovered/Not Resolved]
  - Alanine aminotransferase increased [Recovered/Resolved]
  - Weight decreased [Recovered/Resolved]
  - Diarrhoea [Recovered/Resolved]
  - Hypothyroidism [Recovered/Resolved]
  - Neutropenia [Recovered/Resolved]
  - Thrombocytopenia [Recovered/Resolved]
  - Thrombocytopenia [Recovered/Resolved]
  - Anaemia [Recovered/Resolved]
  - Nausea [Not Recovered/Not Resolved]

NARRATIVE: CASE EVENT DATE: 20180612
